FAERS Safety Report 7572985-6 (Version None)
Quarter: 2011Q2

REPORT INFORMATION
  Report Type: 
  Country: None (occurrence: None)
  Receive Date: 20110627
  Receipt Date: 20110617
  Transmission Date: 20111010
  Serious: Yes (Death, Hospitalization)
  Sender: FDA-Public Use
  Company Number: FR-CELGENEUS-056-21880-11043397

PATIENT
  Sex: Female
  Weight: 73 kg

DRUGS (14)
  1. ASPIRIN [Concomitant]
     Dosage: 75 MILLIGRAM
     Route: 065
     Dates: start: 20110207, end: 20110422
  2. LASIX [Concomitant]
     Dosage: 40 MILLIGRAM
     Route: 048
     Dates: start: 20110425
  3. TRAMADOL HCL [Concomitant]
     Dosage: 200 MILLIGRAM
     Route: 051
     Dates: start: 20110427, end: 20110501
  4. POTASSIUM CHLORIDE [Concomitant]
     Route: 065
     Dates: start: 20110223, end: 20110422
  5. OMEPRAZOLE [Concomitant]
     Dosage: 20 MILLIGRAM
     Route: 051
     Dates: start: 20110217, end: 20110422
  6. POTASSIUM CHLORIDE [Concomitant]
     Route: 065
     Dates: start: 20110506, end: 20110509
  7. PREDNISONE [Concomitant]
     Dosage: 40 MILLIGRAM
     Route: 048
     Dates: start: 20110420, end: 20110421
  8. PREDNISONE [Concomitant]
  9. LASIX [Concomitant]
     Dosage: 40 MILLIGRAM
     Route: 048
     Dates: start: 20110207, end: 20110422
  10. BIONOLYTE [Concomitant]
     Dosage: 2000 MILLILITER
     Route: 065
  11. POTASSIUM CHLORIDE [Concomitant]
     Dosage: 4 GRAM
     Route: 065
     Dates: start: 20110421
  12. REVLIMID [Suspect]
     Dosage: 10 MILLIGRAM
     Route: 048
     Dates: start: 20110207, end: 20110403
  13. TRAMADOL HCL [Concomitant]
     Route: 065
     Dates: start: 20110217, end: 20110422
  14. OMEPRAZOLE [Concomitant]
     Dosage: 20 MILLIGRAM
     Route: 051
     Dates: start: 20110423, end: 20110501

REACTIONS (4)
  - URINARY TRACT INFECTION [None]
  - HYPOKALAEMIA [None]
  - PYREXIA [None]
  - GENERAL PHYSICAL HEALTH DETERIORATION [None]
